FAERS Safety Report 21229473 (Version 2)
Quarter: 2022Q3

REPORT INFORMATION
  Report Type: Other
  Country: AU (occurrence: AU)
  Receive Date: 20220818
  Receipt Date: 20220901
  Transmission Date: 20221026
  Serious: Yes (Hospitalization)
  Sender: FDA-Public Use
  Company Number: AU-Albireo AB-2022ALB000212

PATIENT
  Age: 7 Month
  Sex: Male

DRUGS (1)
  1. BYLVAY [Suspect]
     Active Substance: ODEVIXIBAT
     Indication: Progressive familial intrahepatic cholestasis
     Route: 048

REACTIONS (5)
  - Dehydration [Unknown]
  - Drug ineffective [Unknown]
  - Pruritus [Unknown]
  - Poor quality sleep [Unknown]
  - Feeding disorder [Unknown]
